FAERS Safety Report 24837541 (Version 1)
Quarter: 2025Q1

REPORT INFORMATION
  Report Type: Spontaneous
  Country: US (occurrence: None)
  Receive Date: 20250112
  Receipt Date: 20250112
  Transmission Date: 20250409
  Serious: Yes (Disabling)
  Sender: FDA-CTU
  Company Number: None

PATIENT
  Age: 42 Year
  Sex: Male
  Weight: 72 kg

DRUGS (4)
  1. DUPIXENT [Suspect]
     Active Substance: DUPILUMAB
     Indication: Eczema
     Dates: start: 20240626, end: 20240724
  2. METHOTREXATE [Concomitant]
     Active Substance: METHOTREXATE
  3. fluticosone [Concomitant]
  4. VTAMA [Concomitant]
     Active Substance: TAPINAROF

REACTIONS (7)
  - Arthralgia [None]
  - Arthralgia [None]
  - Gait disturbance [None]
  - Arthralgia [None]
  - Myalgia [None]
  - Therapy cessation [None]
  - Fall [None]

NARRATIVE: CASE EVENT DATE: 20240626
